FAERS Safety Report 7688069-2 (Version None)
Quarter: 2011Q3

REPORT INFORMATION
  Report Type: 
  Country: None (occurrence: None)
  Receive Date: 20110817
  Receipt Date: 20110808
  Transmission Date: 20111222
  Serious: Yes (Death, Other)
  Sender: FDA-Public Use
  Company Number: US-CEPHALON-2009003669

PATIENT
  Sex: Female
  Weight: 66 kg

DRUGS (6)
  1. PROVIGIL [Suspect]
     Route: 048
     Dates: start: 20070101, end: 20071205
  2. PROVIGIL [Suspect]
     Route: 048
     Dates: start: 20081009, end: 20081015
  3. RITALIN [Concomitant]
     Route: 048
     Dates: end: 20071127
  4. PROVIGIL [Suspect]
     Indication: NARCOLEPSY
     Route: 048
     Dates: end: 20070101
  5. PROVIGIL [Suspect]
     Route: 048
     Dates: start: 20071205, end: 20081009
  6. RITALIN [Concomitant]
     Route: 048
     Dates: start: 20071127, end: 20071205

REACTIONS (9)
  - PULMONARY OEDEMA [None]
  - FATIGUE [None]
  - MYOCARDIAL FIBROSIS [None]
  - SPLEEN CONGESTION [None]
  - DRUG INEFFECTIVE [None]
  - SOMNOLENCE [None]
  - MYOCARDITIS [None]
  - CARDIAC VENTRICULAR DISORDER [None]
  - PULMONARY CONGESTION [None]
